FAERS Safety Report 6281484-3 (Version None)
Quarter: 2009Q3

REPORT INFORMATION
  Report Type: 
  Country: None (occurrence: None)
  Receive Date: 20090724
  Receipt Date: 20090508
  Transmission Date: 20100115
  Serious: Yes (Hospitalization)
  Sender: FDA-Public Use
  Company Number: A0784654A

PATIENT
  Age: 41 Year
  Sex: Female
  Weight: 160 kg

DRUGS (15)
  1. AVANDIA [Suspect]
     Indication: DIABETES MELLITUS
     Dosage: 4MG PER DAY
     Route: 048
     Dates: start: 20030901, end: 20070401
  2. METFORMIN HCL [Concomitant]
  3. GLUCOTROL [Concomitant]
  4. GLUCOTROL XL [Concomitant]
  5. ZOCOR [Concomitant]
  6. LOVASTATIN [Concomitant]
  7. ZYPREXA [Concomitant]
  8. SEROQUEL [Concomitant]
  9. MIRTAZAPINE [Concomitant]
  10. EFFEXOR [Concomitant]
  11. GABAPENTIN [Concomitant]
  12. LISINOPRIL [Concomitant]
  13. PROAIR HFA [Concomitant]
  14. ALBUTEROL [Concomitant]
  15. GEMFIBROZIL [Concomitant]

REACTIONS (1)
  - CARDIAC FAILURE CONGESTIVE [None]
